FAERS Safety Report 23340428 (Version 8)
Quarter: 2025Q2

REPORT INFORMATION
  Report Type: Report from Study
  Country: AU (occurrence: AU)
  Receive Date: 20231227
  Receipt Date: 20250606
  Transmission Date: 20250717
  Serious: Yes (Other)
  Sender: NOVARTIS
  Company Number: AU-002147023-NVSC2023AU077127

PATIENT
  Sex: Female

DRUGS (6)
  1. KESIMPTA [Suspect]
     Active Substance: OFATUMUMAB
     Indication: Relapsing-remitting multiple sclerosis
     Dosage: 20 MG, QMO
     Route: 058
     Dates: start: 20221111
  2. KESIMPTA [Suspect]
     Active Substance: OFATUMUMAB
     Dosage: 20 MG, QMO
     Route: 058
     Dates: start: 20230919
  3. KESIMPTA [Suspect]
     Active Substance: OFATUMUMAB
     Route: 058
     Dates: start: 20250126
  4. KESIMPTA [Suspect]
     Active Substance: OFATUMUMAB
     Route: 058
     Dates: start: 20240128
  5. KESIMPTA [Suspect]
     Active Substance: OFATUMUMAB
     Route: 058
     Dates: start: 20250227
  6. KESIMPTA [Suspect]
     Active Substance: OFATUMUMAB
     Route: 065

REACTIONS (6)
  - Lower respiratory tract infection [Unknown]
  - Alopecia [Unknown]
  - COVID-19 [Unknown]
  - Headache [Recovered/Resolved]
  - Illness [Recovering/Resolving]
  - Inappropriate schedule of product administration [Unknown]
